FAERS Safety Report 17265054 (Version 3)
Quarter: 2020Q2

REPORT INFORMATION
  Report Type: Report from Study
  Country: None (occurrence: US)
  Receive Date: 20200113
  Receipt Date: 20200522
  Transmission Date: 20200713
  Serious: Yes (Other)
  Sender: FDA-Public Use
  Company Number: US-ABBVIE-20K-163-3227997-00

PATIENT
  Sex: Male
  Weight: 90.8 kg

DRUGS (1)
  1. HUMIRA [Suspect]
     Active Substance: ADALIMUMAB
     Indication: PSORIATIC ARTHROPATHY
     Route: 058
     Dates: start: 2001

REACTIONS (4)
  - Injection site pain [Recovered/Resolved]
  - Hernia [Recovered/Resolved]
  - Thyroglossal cyst [Recovered/Resolved]
  - Arthrodesis [Recovered/Resolved]

NARRATIVE: CASE EVENT DATE: 2005
